FAERS Safety Report 25040549 (Version 1)
Quarter: 2025Q1

REPORT INFORMATION
  Report Type: Spontaneous
  Country: FR (occurrence: FR)
  Receive Date: 20250305
  Receipt Date: 20250305
  Transmission Date: 20250409
  Serious: Yes (Death)
  Sender: BRISTOL-MYERS SQUIBB COMPANY
  Company Number: None

PATIENT
  Age: 89 Year
  Sex: Male
  Weight: 71 kg

DRUGS (8)
  1. ELIQUIS [Interacting]
     Active Substance: APIXABAN
     Indication: Atrial fibrillation
     Route: 048
     Dates: start: 20241001
  2. RISPERIDONE [Interacting]
     Active Substance: RISPERIDONE
     Indication: Agitation
     Route: 048
     Dates: start: 20250209, end: 20250209
  3. MIANSERIN HYDROCHLORIDE [Interacting]
     Active Substance: MIANSERIN HYDROCHLORIDE
     Indication: Aggression
     Dosage: SCORED FILM COATED TABLET
     Route: 048
     Dates: start: 20250208
  4. FENTANYL [Interacting]
     Active Substance: FENTANYL
     Indication: Pain
     Dosage: INTRO ON 27-JAN-2025 AT 25  ? G/D, INCREASE IN DOSAGE ON 08-FEB-2025)
     Route: 062
     Dates: start: 20250127
  5. FENTANYL [Interacting]
     Active Substance: FENTANYL
     Route: 062
     Dates: start: 20250208
  6. BISOPROLOL FUMARATE [Interacting]
     Active Substance: BISOPROLOL FUMARATE
     Indication: Atrial fibrillation
     Route: 048
     Dates: start: 20241001
  7. ALPRAZOLAM [Interacting]
     Active Substance: ALPRAZOLAM
     Indication: Product used for unknown indication
     Route: 048
  8. PREDNISONE [Interacting]
     Active Substance: PREDNISONE
     Indication: Pemphigoid
     Route: 048
     Dates: start: 20241101

REACTIONS (3)
  - Fall [Fatal]
  - Haematoma [Fatal]
  - Drug interaction [Unknown]

NARRATIVE: CASE EVENT DATE: 20250210
